FAERS Safety Report 5756426-7 (Version None)
Quarter: 2008Q2

REPORT INFORMATION
  Report Type: 
  Country: None (occurrence: None)
  Receive Date: 20080603
  Receipt Date: 20080430
  Transmission Date: 20081010
  Serious: No
  Sender: FDA-Public Use
  Company Number: US-BAYER-200817414NA

PATIENT
  Age: 23 Year
  Sex: Female
  Weight: 73 kg

DRUGS (4)
  1. MIRENA [Suspect]
     Indication: CONTRACEPTION
     Route: 015
     Dates: start: 20070407
  2. ALBUTEROL [Concomitant]
     Indication: ASTHMA
     Route: 055
  3. SLOVENT [Concomitant]
     Indication: MULTIPLE ALLERGIES
  4. CLARITIN-D [Concomitant]
     Indication: MULTIPLE ALLERGIES

REACTIONS (6)
  - ABDOMINAL PAIN LOWER [None]
  - DIZZINESS [None]
  - MENSTRUATION DELAYED [None]
  - OVARIAN CYST [None]
  - PROCEDURAL PAIN [None]
  - WEIGHT INCREASED [None]
